FAERS Safety Report 10071041 (Version 1)
Quarter: 2014Q2

REPORT INFORMATION
  Report Type: Spontaneous
  Country: VE (occurrence: VE)
  Receive Date: 20140410
  Receipt Date: 20140410
  Transmission Date: 20141212
  Serious: Yes (Hospitalization)
  Sender: FDA-Public Use
  Company Number: PHHY2014VE043062

PATIENT
  Age: 2 Year
  Sex: 0

DRUGS (5)
  1. CLOFAZIMINE [Suspect]
     Indication: NODULE
     Dosage: 50 MG, PER WEEK
     Route: 048
  2. CLARITHROMYCIN [Suspect]
     Indication: NODULE
     Route: 048
  3. DDS [Suspect]
     Indication: NODULE
     Dosage: 0.5 MG/KG, PER DAY
  4. RIFAMPICINE [Concomitant]
     Dosage: 10 MG/KG, PER MONTH
  5. PREDNISONE [Concomitant]
     Dosage: 0.5 MG/KG, PER DAY

REACTIONS (2)
  - Drug intolerance [Recovering/Resolving]
  - Vomiting [Recovering/Resolving]
